FAERS Safety Report 5944365-8 (Version None)
Quarter: 2008Q4

REPORT INFORMATION
  Report Type: 
  Country: None (occurrence: None)
  Receive Date: 20081106
  Receipt Date: 20081106
  Transmission Date: 20090506
  Serious: Yes (Death)
  Sender: FDA-Public Use
  Company Number: None

PATIENT
  Age: 75 Year
  Sex: Male
  Weight: 90.1751 kg

DRUGS (5)
  1. AVASTIN [Suspect]
     Indication: COLORECTAL CANCER
     Dosage: 415MG 21 DAYS IVP
     Route: 042
     Dates: start: 20070821, end: 20080721
  2. AVASTIN [Suspect]
  3. AVASTIN [Suspect]
  4. AVASTIN [Suspect]
  5. AVASTIN [Suspect]

REACTIONS (1)
  - COLORECTAL CANCER METASTATIC [None]
